FAERS Safety Report 9087576 (Version 1)
Quarter: 2013Q1

REPORT INFORMATION
  Report Type: Spontaneous
  Country: US (occurrence: US)
  Receive Date: 20130201
  Receipt Date: 20130201
  Transmission Date: 20140127
  Serious: No
  Sender: FDA-Public Use
  Company Number: US-PFIZER INC-2013039302

PATIENT
  Age: 42 Year
  Sex: Female
  Weight: 59.86 kg

DRUGS (1)
  1. CYTOMEL [Suspect]
     Indication: TRI-IODOTHYRONINE DECREASED
     Dosage: 25 UG, DAILY
     Dates: start: 2012

REACTIONS (2)
  - Thyroxine decreased [Unknown]
  - Blood thyroid stimulating hormone decreased [Unknown]
